FAERS Safety Report 11841703 (Version 1)
Quarter: 2015Q4

REPORT INFORMATION
  Report Type: Spontaneous
  Country: US (occurrence: US)
  Receive Date: 20151216
  Receipt Date: 20151216
  Transmission Date: 20160305
  Serious: Yes (Other)
  Sender: FDA-Public Use
  Company Number: US-SHIRE-US201516197

PATIENT
  Age: 70 Year
  Sex: Female
  Weight: 63.39 kg

DRUGS (5)
  1. ATENOLOL. [Concomitant]
     Active Substance: ATENOLOL
     Indication: CARDIAC DISORDER
     Dosage: 50 MG, 1X/DAY:QD
     Route: 065
     Dates: start: 2005
  2. CEVIMELINE. [Concomitant]
     Active Substance: CEVIMELINE
     Indication: DRY EYE
  3. CEVIMELINE. [Concomitant]
     Active Substance: CEVIMELINE
     Indication: DRY MOUTH
     Dosage: 30 MG, 2X/DAY:BID
     Route: 065
     Dates: start: 2011
  4. GABAPENTIN. [Concomitant]
     Active Substance: GABAPENTIN
     Indication: NEUROPATHY PERIPHERAL
     Dosage: 300 MG, 2X/DAY:BID, ^FOREVER^
     Route: 065
  5. LIALDA [Suspect]
     Active Substance: MESALAMINE
     Indication: COLITIS
     Dosage: 2.4 G, 2X/DAY:BID, (MORNING AND EVENING)
     Route: 048
     Dates: start: 201511, end: 20151202

REACTIONS (9)
  - Incoherent [Recovered/Resolved]
  - Influenza like illness [Recovered/Resolved]
  - Inappropriate schedule of drug administration [Recovered/Resolved]
  - Condition aggravated [Recovering/Resolving]
  - Headache [Recovered/Resolved]
  - Systemic lupus erythematosus [Recovering/Resolving]
  - Fatigue [Recovering/Resolving]
  - Dizziness [Recovered/Resolved]
  - Diarrhoea [Recovering/Resolving]

NARRATIVE: CASE EVENT DATE: 201511
